FAERS Safety Report 21656771 (Version 3)
Quarter: 2022Q4

REPORT INFORMATION
  Report Type: Spontaneous
  Country: US (occurrence: US)
  Receive Date: 20221129
  Receipt Date: 20221205
  Transmission Date: 20230113
  Serious: Yes (Hospitalization, Other)
  Sender: FDA-Public Use
  Company Number: US-SA-SAC20221125001087

PATIENT
  Age: 57 Year
  Sex: Female
  Weight: 86 kg

DRUGS (35)
  1. FABRAZYME [Suspect]
     Active Substance: AGALSIDASE BETA
     Indication: Fabry^s disease
     Dosage: 100 MG, QOW
     Dates: start: 20130530
  2. BOTOX COSMETIC [Concomitant]
     Active Substance: ONABOTULINUMTOXINA
  3. ASPIRIN [Concomitant]
     Active Substance: ASPIRIN
  4. HEPARIN [Concomitant]
     Active Substance: HEPARIN SODIUM
  5. SALINE [Concomitant]
     Active Substance: SODIUM CHLORIDE
  6. STERILE WATER [Concomitant]
     Active Substance: WATER
  7. EPINEPHRINE [Concomitant]
     Active Substance: EPINEPHRINE
  8. PRAMIPEXOLE [Concomitant]
     Active Substance: PRAMIPEXOLE
  9. LUNESTA [Concomitant]
     Active Substance: ESZOPICLONE
  10. ZOFRAN [Concomitant]
     Active Substance: ONDANSETRON HYDROCHLORIDE
  11. PIOGLITAZONE [Concomitant]
     Active Substance: PIOGLITAZONE
  12. OLANZAPINE [Concomitant]
     Active Substance: OLANZAPINE
  13. MYRBETRIQ [Concomitant]
     Active Substance: MIRABEGRON
  14. AMITRIPTYLINE [Concomitant]
     Active Substance: AMITRIPTYLINE
  15. ACETAMINOPHEN\HYDROCODONE [Concomitant]
     Active Substance: ACETAMINOPHEN\HYDROCODONE
  16. ACETAMINOPHEN [Concomitant]
     Active Substance: ACETAMINOPHEN
  17. CLONAZEPAM [Concomitant]
     Active Substance: CLONAZEPAM
  18. OMEPRAZOLE [Concomitant]
     Active Substance: OMEPRAZOLE
  19. FUROSEMIDE [Concomitant]
     Active Substance: FUROSEMIDE
  20. MIRALAX [Concomitant]
     Active Substance: POLYETHYLENE GLYCOL 3350
  21. LOSARTAN POTASSIUM [Concomitant]
     Active Substance: LOSARTAN POTASSIUM
  22. MONTELUKAST SODIUM [Concomitant]
     Active Substance: MONTELUKAST SODIUM
  23. BISEPTOL [Concomitant]
     Active Substance: SULFAMETHOXAZOLE\TRIMETHOPRIM
  24. IMITREX [Concomitant]
     Active Substance: SUMATRIPTAN SUCCINATE
  25. DIPHENHYDRAMINE [Concomitant]
     Active Substance: DIPHENHYDRAMINE
  26. DIPHENHYDRAMINE HYDROCHLORIDE [Concomitant]
     Active Substance: DIPHENHYDRAMINE HYDROCHLORIDE
  27. LIDOCAINE [Concomitant]
     Active Substance: LIDOCAINE
  28. HYOSCYAMINE SULFATE [Concomitant]
     Active Substance: HYOSCYAMINE SULFATE
  29. PRAMIPEXOLE DIHYDROCHLORIDE [Concomitant]
     Active Substance: PRAMIPEXOLE DIHYDROCHLORIDE
  30. HYDROCODONE [Concomitant]
     Active Substance: HYDROCODONE
  31. BREO ELLIPTA [Concomitant]
     Active Substance: FLUTICASONE FUROATE\VILANTEROL TRIFENATATE
  32. FIBER [Concomitant]
     Active Substance: PSYLLIUM HUSK
  33. EPIPEN [GABAPENTIN] [Concomitant]
  34. METHYLPREDNISOLONE [Concomitant]
     Active Substance: METHYLPREDNISOLONE
  35. SODIUM CHLORIDE [Concomitant]
     Active Substance: SODIUM CHLORIDE

REACTIONS (2)
  - Pneumonia [Unknown]
  - Fall [Unknown]

NARRATIVE: CASE EVENT DATE: 20221101
